FAERS Safety Report 4723212-6 (Version None)
Quarter: 2005Q3

REPORT INFORMATION
  Report Type: 
  Country: None (occurrence: None)
  Receive Date: 20050720
  Receipt Date: 20050704
  Transmission Date: 20060218
  Serious: No
  Sender: FDA-Public Use
  Company Number: 2004IM000978

PATIENT
  Age: 55 Year
  Sex: Female

DRUGS (2)
  1. ADVAFERON (A643_INTERFERON ALFACON-1) [Suspect]
     Indication: HEPATITIS C
     Dosage: 12 MIU, D; SUBCUTANEOUS
     Route: 058
     Dates: start: 20030206, end: 20030219
  2. ADVAFERON (A643_INTERFERON ALFACON-1) [Suspect]
     Indication: HEPATITIS C
     Dosage: 12 MIU, D; SUBCUTANEOUS
     Route: 058
     Dates: start: 20030221, end: 20030430

REACTIONS (11)
  - ANAEMIA [None]
  - DERMATITIS [None]
  - DRUG ERUPTION [None]
  - ERYTHEMA [None]
  - GASTRITIS [None]
  - HYPERTHYROIDISM [None]
  - HYPOTHYROIDISM [None]
  - INSOMNIA [None]
  - OEDEMA PERIPHERAL [None]
  - PYREXIA [None]
  - RETINAL HAEMORRHAGE [None]
